FAERS Safety Report 9569073 (Version 1)
Quarter: 2013Q3

REPORT INFORMATION
  Report Type: Spontaneous
  Country: US (occurrence: US)
  Receive Date: 20130930
  Receipt Date: 20130930
  Transmission Date: 20140515
  Serious: No
  Sender: FDA-Public Use
  Company Number: US-AMGEN-USASP2013059337

PATIENT
  Age: 63 Year
  Sex: Female
  Weight: 45.81 kg

DRUGS (9)
  1. ENBREL [Suspect]
     Indication: PRODUCT USED FOR UNKNOWN INDICATION
     Dosage: 50 MG, QWK
     Route: 058
  2. METHOTREXATE [Concomitant]
     Dosage: 25 MG/ML, UNK
  3. RELAFEN [Concomitant]
     Dosage: 750 MG, UNK
  4. METOPROLOL [Concomitant]
     Dosage: 100 MG, UNK
  5. METANX [Concomitant]
     Dosage: UNK
  6. VITAMIN D                          /00107901/ [Concomitant]
     Dosage: 1000 UNIT, UNK
  7. VITAMIN C                          /00008001/ [Concomitant]
     Dosage: 500 MG, UNK
  8. FOLIC ACID [Concomitant]
     Dosage: UNK
  9. MULTI VIT [Concomitant]
     Dosage: UNK

REACTIONS (1)
  - Fatigue [Unknown]
